FAERS Safety Report 8112295-1 (Version None)
Quarter: 2012Q1

REPORT INFORMATION
  Report Type: 
  Country: None (occurrence: None)
  Receive Date: 20120203
  Receipt Date: 20120203
  Transmission Date: 20120608
  Serious: Yes (Other)
  Sender: FDA-Public Use
  Company Number: None

PATIENT
  Age: 43 Year
  Sex: Female
  Weight: 45.359 kg

DRUGS (2)
  1. FLECTOR [Suspect]
     Indication: ARTHRALGIA
     Dosage: HALF PATCH
     Route: 061
     Dates: start: 20101205, end: 20110908
  2. FLECTOR [Suspect]
     Indication: NEUROPATHY PERIPHERAL
     Dosage: HALF PATCH
     Route: 061
     Dates: start: 20101205, end: 20110908

REACTIONS (3)
  - APPLICATION SITE PAIN [None]
  - TENDONITIS [None]
  - LIPOATROPHY [None]
